FAERS Safety Report 7078190-4 (Version None)
Quarter: 2010Q4

REPORT INFORMATION
  Report Type: 
  Country: None (occurrence: None)
  Receive Date: 20101102
  Receipt Date: 20101018
  Transmission Date: 20110411
  Serious: Yes (Hospitalization)
  Sender: FDA-Public Use
  Company Number: US-BAYER-201038178NA

PATIENT
  Age: 28 Year
  Sex: Female
  Weight: 76 kg

DRUGS (5)
  1. YAZ [Suspect]
     Indication: CONTRACEPTION
     Route: 048
     Dates: start: 20070101, end: 20091101
  2. YASMIN [Suspect]
     Indication: PRODUCT USED FOR UNKNOWN INDICATION
     Route: 048
  3. OCELLA [Suspect]
     Indication: PRODUCT USED FOR UNKNOWN INDICATION
     Route: 048
  4. ADVIL [Concomitant]
     Dates: start: 19990101, end: 20100101
  5. ALEVE (CAPLET) [Concomitant]
     Dates: start: 19990101, end: 20100101

REACTIONS (7)
  - CHEST PAIN [None]
  - CHOLECYSTECTOMY [None]
  - DEPRESSION [None]
  - EMOTIONAL DISTRESS [None]
  - FEAR OF DEATH [None]
  - NERVOUSNESS [None]
  - VOMITING [None]
